FAERS Safety Report 10476138 (Version 2)
Quarter: 2014Q3

REPORT INFORMATION
  Report Type: Spontaneous
  Country: US (occurrence: None)
  Receive Date: 20140923
  Receipt Date: 20140929
  Transmission Date: 20150326
  Serious: Yes (Death, Hospitalization)
  Sender: FDA-Public Use
  Company Number: 2014-US-011933

PATIENT
  Age: 80 Year
  Sex: Male

DRUGS (8)
  1. ASPIRIN (ACETYLSALICYLIC ACID) [Concomitant]
     Active Substance: ASPIRIN
  2. TRICOR [Concomitant]
     Active Substance: FENOFIBRATE
  3. ZOCOR [Concomitant]
     Active Substance: SIMVASTATIN
  4. TERAZOSIN (TERAZOSIN HYDROCHLORIDE) [Concomitant]
  5. XYREM [Suspect]
     Active Substance: SODIUM OXYBATE
     Indication: NARCOLEPSY
     Route: 048
     Dates: start: 200805, end: 200806
  6. RITALIN (METHYLPHENIDATE HYDROCHLORIDE) [Concomitant]
     Active Substance: METHYLPHENIDATE HYDROCHLORIDE
  7. NORTRIPTYLINE HCL (NORTRIPTYLINE HYDROCHLORIDE) [Concomitant]
  8. XYREM [Suspect]
     Active Substance: SODIUM OXYBATE
     Indication: CATAPLEXY
     Route: 048
     Dates: start: 200805, end: 200806

REACTIONS (2)
  - Hospitalisation [None]
  - Cerebrovascular accident [None]

NARRATIVE: CASE EVENT DATE: 20140912
